FAERS Safety Report 25903629 (Version 1)
Quarter: 2025Q4

REPORT INFORMATION
  Report Type: Spontaneous
  Country: EU (occurrence: EU)
  Receive Date: 20251010
  Receipt Date: 20251010
  Transmission Date: 20260118
  Serious: Yes (Other)
  Sender: ASTELLAS
  Company Number: EU-ASTELLAS-2025-AER-054280

PATIENT
  Age: 73 Year
  Sex: Male

DRUGS (2)
  1. GILTERITINIB [Suspect]
     Active Substance: GILTERITINIB
     Indication: Acute myeloid leukaemia
     Route: 065
     Dates: start: 20230215
  2. GILTERITINIB [Suspect]
     Active Substance: GILTERITINIB
     Dosage: INCREASED DOSE
     Route: 065

REACTIONS (5)
  - Staphylococcal sepsis [Unknown]
  - Bone marrow failure [Unknown]
  - Klebsiella sepsis [Unknown]
  - Aspergillus test positive [Unknown]
  - Candida test positive [Unknown]
